FAERS Safety Report 18601693 (Version 1)
Quarter: 2020Q4

REPORT INFORMATION
  Report Type: Report from Study
  Country: CA (occurrence: CA)
  Receive Date: 20201210
  Receipt Date: 20201210
  Transmission Date: 20210114
  Serious: Yes (Other)
  Sender: FDA-Public Use
  Company Number: CA-ASTRAZENECA-2020SF60502

PATIENT
  Age: 22606 Day
  Sex: Female
  Weight: 151.9 kg

DRUGS (7)
  1. HYDROMORPHONE [Concomitant]
     Active Substance: HYDROMORPHONE
     Indication: PAIN MANAGEMENT
     Dosage: 2 MG QID PRN (MAX X 8MG)
     Route: 048
     Dates: start: 20181101
  2. DULOXETINE. [Concomitant]
     Active Substance: DULOXETINE
     Indication: PAIN
     Dosage: 90 MG OD
     Route: 048
     Dates: start: 20181101
  3. ATORVASTATIN [Concomitant]
     Active Substance: ATORVASTATIN
     Indication: BLOOD CHOLESTEROL DECREASED
     Dosage: 20 MG OD
     Route: 048
     Dates: start: 20051101
  4. FASENRA [Suspect]
     Active Substance: BENRALIZUMAB
     Indication: ASTHMA
     Dosage: 30 MG/ML Q4-8WKS
     Route: 058
     Dates: start: 20201120
  5. LEVOTHYROXINE. [Concomitant]
     Active Substance: LEVOTHYROXINE
     Indication: HYPOTHYROIDISM
     Dosage: 75 MCG OD
     Route: 048
     Dates: start: 20200601
  6. AMITRPTYLINE [Concomitant]
     Indication: SLEEP DISORDER
     Dosage: 25 MG OD
     Route: 048
     Dates: start: 20200901
  7. NAPROXEN. [Concomitant]
     Active Substance: NAPROXEN
     Indication: OSTEOARTHRITIS
     Dosage: 500 MG BID
     Route: 048
     Dates: start: 20200801

REACTIONS (3)
  - Dyspnoea [Recovering/Resolving]
  - Fluid retention [Recovering/Resolving]
  - Fatigue [Recovering/Resolving]

NARRATIVE: CASE EVENT DATE: 20201125
